FAERS Safety Report 23281023 (Version 1)
Quarter: 2023Q4

REPORT INFORMATION
  Report Type: Spontaneous
  Country: US (occurrence: US)
  Receive Date: 20231211
  Receipt Date: 20231211
  Transmission Date: 20240110
  Serious: No
  Sender: FDA-Public Use
  Company Number: US-NOVEN PHARMACEUTICALS, INC.-2023-NOV-US001001

PATIENT
  Age: 65 Year
  Sex: Female

DRUGS (3)
  1. ESTRADIOL [Suspect]
     Active Substance: ESTRADIOL
     Indication: Hormone replacement therapy
     Dosage: 0.1 MG, 1 PATCH EVERY 3-4 DAYS (ON TUESDAYS AND FRIDAYS)
     Route: 062
  2. ESTRADIOL [Suspect]
     Active Substance: ESTRADIOL
     Indication: Hot flush
  3. ESTRADIOL [Suspect]
     Active Substance: ESTRADIOL
     Indication: Sleep disorder

REACTIONS (6)
  - Fatigue [Recovered/Resolved]
  - Irritability [Recovered/Resolved]
  - Emotional disorder [Recovered/Resolved]
  - Product adhesion issue [Recovered/Resolved]
  - Device issue [Recovered/Resolved]
  - Product dose omission in error [Recovered/Resolved]

NARRATIVE: CASE EVENT DATE: 20230801
